FAERS Safety Report 20919848 (Version 1)
Quarter: 2022Q2

REPORT INFORMATION
  Report Type: Spontaneous
  Country: US (occurrence: US)
  Receive Date: 20220606
  Receipt Date: 20220606
  Transmission Date: 20220720
  Serious: Yes (Hospitalization, Other)
  Sender: FDA-Public Use
  Company Number: US-SA-SAC20220602001217

PATIENT
  Sex: Female

DRUGS (12)
  1. AUBAGIO [Suspect]
     Active Substance: TERIFLUNOMIDE
     Indication: Multiple sclerosis
     Dosage: 1 DF, QD
     Route: 048
  2. BACLOFEN [Concomitant]
     Active Substance: BACLOFEN
  3. AMOXICILLIN [Concomitant]
     Active Substance: AMOXICILLIN
  4. AMPHETAMINE [Concomitant]
     Active Substance: AMPHETAMINE
  5. BUPROPION [Concomitant]
     Active Substance: BUPROPION
  6. CETIRIZINE [Concomitant]
     Active Substance: CETIRIZINE HYDROCHLORIDE
  7. FLUTICASONE [Concomitant]
     Active Substance: FLUTICASONE
  8. OMEPRAZOLE [Concomitant]
     Active Substance: OMEPRAZOLE
  9. VITAMIN D NOS [Concomitant]
     Active Substance: VITAMIN D NOS
  10. ZOLPIDEM [Concomitant]
     Active Substance: ZOLPIDEM TARTRATE
  11. LEVOTHYROXINE [Concomitant]
     Active Substance: LEVOTHYROXINE
  12. CIPROFLOXACIN [Concomitant]
     Active Substance: CIPROFLOXACIN

REACTIONS (3)
  - Pharyngeal swelling [Recovered/Resolved]
  - Throat tightness [Recovered/Resolved]
  - Anaphylactic shock [Recovered/Resolved]
